FAERS Safety Report 12168939 (Version 2)
Quarter: 2016Q2

REPORT INFORMATION
  Report Type: Report from Study
  Country: NL (occurrence: NL)
  Receive Date: 20160310
  Receipt Date: 20160602
  Transmission Date: 20160815
  Serious: Yes (Death)
  Sender: FDA-Public Use
  Company Number: NL-ABBVIE-16P-114-1578632-00

PATIENT
  Age: 69 Year
  Sex: Male

DRUGS (6)
  1. CLOZAPINE. [Concomitant]
     Active Substance: CLOZAPINE
     Indication: DEATH
     Dosage: ONCE
     Route: 048
     Dates: end: 20160302
  2. MOVICOLON [Concomitant]
     Active Substance: POLYETHYLENE GLYCOL 3350\POTASSIUM CHLORIDE\SODIUM BICARBONATE\SODIUM CHLORIDE
     Indication: DEATH
     Dosage: ONCE
     Route: 048
     Dates: end: 20160302
  3. DUODOPA [Suspect]
     Active Substance: CARBIDOPA\LEVODOPA
     Indication: PARKINSON^S DISEASE
     Route: 050
     Dates: start: 20080326, end: 2014
  4. ALCAL [Concomitant]
     Indication: DEATH
     Dosage: ONCE
     Dates: end: 20160302
  5. INSULIN [Concomitant]
     Active Substance: INSULIN NOS
     Indication: DEATH
     Dosage: ONCE
     Route: 058
     Dates: end: 20160302
  6. DUODOPA [Suspect]
     Active Substance: CARBIDOPA\LEVODOPA
     Dosage: CONTINUOUS 3.5, EXTRA 2.0 10-22 HOURS
     Route: 050
     Dates: start: 20140903, end: 20160302

REACTIONS (2)
  - Sleep apnoea syndrome [Unknown]
  - Parkinson^s disease [Fatal]

NARRATIVE: CASE EVENT DATE: 20120202
